FAERS Safety Report 6038547-7 (Version None)
Quarter: 2009Q1

REPORT INFORMATION
  Report Type: 
  Country: None (occurrence: None)
  Receive Date: 20090115
  Receipt Date: 20080616
  Transmission Date: 20090719
  Serious: No
  Sender: FDA-Public Use
  Company Number: US-KINGPHARMUSA00001-K200800720

PATIENT
  Age: 69 Year
  Sex: Male

DRUGS (1)
  1. EPIPEN [Suspect]
     Indication: ACCIDENTAL EXPOSURE
     Dosage: .3 MG, SINGLE
     Dates: start: 20080616, end: 20080616

REACTIONS (7)
  - ACCIDENTAL EXPOSURE [None]
  - HYPOAESTHESIA [None]
  - INJECTION SITE DISCOLOURATION [None]
  - INJECTION SITE HAEMATOMA [None]
  - INJECTION SITE PAIN [None]
  - INJECTION SITE PALLOR [None]
  - VASOCONSTRICTION [None]
